FAERS Safety Report 13911730 (Version 1)
Quarter: 2017Q3

REPORT INFORMATION
  Report Type: Spontaneous
  Country: US (occurrence: US)
  Receive Date: 20170828
  Receipt Date: 20170828
  Transmission Date: 20171127
  Serious: No
  Sender: FDA-Public Use
  Company Number: US-ROCHE-1142501

PATIENT
  Age: 11 Year
  Sex: Female
  Weight: 34.5 kg

DRUGS (5)
  1. VENTOLIN [Concomitant]
     Active Substance: ALBUTEROL SULFATE
  2. NUTROPIN [Suspect]
     Active Substance: SOMATROPIN
     Indication: GROWTH HORMONE DEFICIENCY
     Route: 058
     Dates: start: 199607
  3. ALBUTEROL INHALER [Concomitant]
     Active Substance: ALBUTEROL
  4. FLOVENT [Concomitant]
     Active Substance: FLUTICASONE PROPIONATE
  5. PROVENTIL [Concomitant]
     Active Substance: ALBUTEROL

REACTIONS (4)
  - Asthma [Unknown]
  - Diarrhoea [Unknown]
  - Decreased appetite [Unknown]
  - Acne [Unknown]

NARRATIVE: CASE EVENT DATE: 199807
